FAERS Safety Report 17253428 (Version 2)
Quarter: 2020Q1

REPORT INFORMATION
  Report Type: Spontaneous
  Country: DE (occurrence: DE)
  Receive Date: 20200109
  Receipt Date: 20200213
  Transmission Date: 20200409
  Serious: Yes (Hospitalization, Other)
  Sender: FDA-Public Use
  Company Number: DE-MYLANLABS-2020M1001942

PATIENT
  Age: 56 Year
  Sex: Female

DRUGS (7)
  1. LEVETIRACETAM. [Suspect]
     Active Substance: LEVETIRACETAM
     Indication: EPILEPSY
     Dosage: 250 MILLIGRAM, QD (250 MG, BID)
     Route: 048
  2. LEVETIRACETAM. [Suspect]
     Active Substance: LEVETIRACETAM
     Indication: GLIOBLASTOMA MULTIFORME
     Dosage: UNK
  3. VIGANTOL                           /00318501/ [Suspect]
     Active Substance: CHOLECALCIFEROL
     Indication: OSTEOPOROSIS
     Dosage: 2000 INTERNATIONAL UNIT
     Route: 048
  4. LEVETIRACETAM. [Suspect]
     Active Substance: LEVETIRACETAM
     Dosage: 250 MG, BID
     Route: 048
  5. METHADONE [Suspect]
     Active Substance: METHADONE HYDROCHLORIDE
     Indication: DRUG THERAPY
     Dosage: 26 MILLIGRAM, BID
     Route: 048
     Dates: start: 2017
  6. METHADONE [Suspect]
     Active Substance: METHADONE HYDROCHLORIDE
     Indication: GLIOBLASTOMA MULTIFORME
     Dosage: UNK
  7. DEXAMETHASONE. [Suspect]
     Active Substance: DEXAMETHASONE
     Indication: GLIOBLASTOMA MULTIFORME
     Dosage: 12 MILLIGRAM
     Route: 048
     Dates: start: 201803, end: 201804

REACTIONS (22)
  - Femoral neck fracture [Unknown]
  - Confusional state [Unknown]
  - Psychomotor retardation [Unknown]
  - Weight bearing difficulty [Unknown]
  - General physical health deterioration [Unknown]
  - Disturbance in attention [Not Recovered/Not Resolved]
  - Fatigue [Unknown]
  - Mobility decreased [Unknown]
  - Hemiparesis [Unknown]
  - Pain [Unknown]
  - White matter lesion [Unknown]
  - Foot deformity [Unknown]
  - Poor quality sleep [Unknown]
  - Glioblastoma multiforme [Recovering/Resolving]
  - Aphasia [Unknown]
  - Dysphagia [Unknown]
  - Malignant neoplasm progression [Recovering/Resolving]
  - Restlessness [Unknown]
  - Asthenia [Unknown]
  - Coordination abnormal [Unknown]
  - Product use in unapproved indication [Unknown]
  - Fall [Unknown]

NARRATIVE: CASE EVENT DATE: 20180227
